FAERS Safety Report 25001770 (Version 1)
Quarter: 2025Q1

REPORT INFORMATION
  Report Type: Report from Study
  Country: US (occurrence: US)
  Receive Date: 20250224
  Receipt Date: 20250224
  Transmission Date: 20250408
  Serious: Yes (Hospitalization)
  Sender: DECIPHERA PHARMACEUTICALS
  Company Number: US-DECIPHERA PHARMACEUTICALS LLC-2025US000136

PATIENT
  Age: 54 Year
  Sex: Male
  Weight: 107.8 kg

DRUGS (1)
  1. QINLOCK [Suspect]
     Active Substance: RIPRETINIB
     Indication: Gastrointestinal stromal tumour
     Dosage: 150 MILLIGRAM, QD
     Route: 048
     Dates: start: 20241120, end: 202412

REACTIONS (4)
  - Hospitalisation [Unknown]
  - Muscle atrophy [Unknown]
  - Fatigue [Unknown]
  - Weight decreased [Unknown]
